FAERS Safety Report 12189982 (Version 1)
Quarter: 2016Q1

REPORT INFORMATION
  Report Type: Spontaneous
  Country: US (occurrence: None)
  Receive Date: 20160317
  Receipt Date: 20160317
  Transmission Date: 20160526
  Serious: No
  Sender: FDA-Public Use
  Company Number: None

PATIENT
  Age: 43 Year
  Sex: Female
  Weight: 67.13 kg

DRUGS (4)
  1. ARMOUR THYROID [Concomitant]
     Active Substance: THYROID, PORCINE
  2. MAGNESIUM [Concomitant]
     Active Substance: MAGNESIUM
  3. LUNESTA [Suspect]
     Active Substance: ESZOPICLONE
     Indication: INSOMNIA
     Dosage: 1 TABLET AT BEDTIME TAKEN BY MOUTH
     Route: 048
     Dates: start: 20160313, end: 20160316
  4. VITAMIN D [Concomitant]
     Active Substance: CHOLECALCIFEROL

REACTIONS (4)
  - Restless legs syndrome [None]
  - Pruritus [None]
  - Psychomotor hyperactivity [None]
  - Insomnia [None]

NARRATIVE: CASE EVENT DATE: 20160316
